FAERS Safety Report 9061568 (Version 2)
Quarter: 2013Q1

REPORT INFORMATION
  Report Type: Spontaneous
  Country: BR (occurrence: BR)
  Receive Date: 20130204
  Receipt Date: 20130219
  Transmission Date: 20140127
  Serious: Yes (Death, Hospitalization)
  Sender: FDA-Public Use
  Company Number: PHHY2013BR009630

PATIENT
  Sex: Female
  Weight: 57 kg

DRUGS (6)
  1. FORASEQ [Suspect]
     Indication: DYSPNOEA
     Dosage: UNK, Q12H(2 YEARS AGO)
  2. FORASEQ [Suspect]
     Dosage: 1 DF DAILY
  3. BEROTEC [Concomitant]
  4. ATROVENT [Concomitant]
  5. AMIODARONE HYDROCHLORIDE [Concomitant]
  6. SERTRALINE HYDROCHLORIDE [Concomitant]

REACTIONS (6)
  - Death [Fatal]
  - Pneumonia [Unknown]
  - Bronchitis [Unknown]
  - Dyspnoea [Unknown]
  - Cough [Unknown]
  - Drug administration error [Unknown]
